FAERS Safety Report 4865675-1 (Version None)
Quarter: 2005Q4

REPORT INFORMATION
  Report Type: 
  Country: None (occurrence: None)
  Receive Date: 20051220
  Receipt Date: 20051206
  Transmission Date: 20060501
  Serious: Yes (Other)
  Sender: FDA-Public Use
  Company Number: 430050M05USA

PATIENT
  Age: 55 Year
  Sex: Female

DRUGS (2)
  1. NOVANTRONE [Suspect]
     Indication: MULTIPLE SCLEROSIS
     Dosage: 12 MG/M2, 1 IN 3 MONTHS, NOT REPORTED
     Dates: start: 20020701, end: 20040501
  2. COPAXONE [Concomitant]

REACTIONS (6)
  - HAEMATURIA [None]
  - LUNG DISORDER [None]
  - LUNG NEOPLASM MALIGNANT [None]
  - RENAL CELL CARCINOMA STAGE UNSPECIFIED [None]
  - TERMINAL STATE [None]
  - TRANSITIONAL CELL CARCINOMA [None]
